FAERS Safety Report 7092707-5 (Version None)
Quarter: 2010Q4

REPORT INFORMATION
  Report Type: 
  Country: None (occurrence: None)
  Receive Date: 20101110
  Receipt Date: 20101029
  Transmission Date: 20110411
  Serious: Yes (Hospitalization)
  Sender: FDA-Public Use
  Company Number: US-ELI_LILLY_AND_COMPANY-US201007005733

PATIENT
  Sex: Female

DRUGS (18)
  1. FORTEO [Suspect]
     Indication: OSTEOPOROSIS
     Dosage: 20 UG, DAILY (1/D)
     Dates: start: 20100519
  2. FORTEO [Suspect]
     Dosage: 20 UG, DAILY (1/D)
  3. LEVOTHYROXINE [Concomitant]
     Dosage: 25 MG, DAILY (1/D)
  4. ASPIRIN [Concomitant]
     Dosage: 81 MG, DAILY (1/D)
  5. ATENOLOL [Concomitant]
     Dosage: 25 MG, 2/D
  6. GEMFIBROZIL [Concomitant]
     Dosage: 600 MG, 2/D
  7. RANEXA [Concomitant]
     Dosage: 500 MG, 2/D
  8. ESTRADIOL [Concomitant]
     Dosage: 1 MG, DAILY (1/D)
  9. PLAVIX [Concomitant]
     Dosage: 75 MG, DAILY (1/D)
  10. PRAMIPEXOLE [Concomitant]
     Dosage: UNK, DAILY (1/D)
  11. CELEBREX [Concomitant]
     Dosage: 200 MG, DAILY (1/D)
  12. FERROUS SULFATE [Concomitant]
     Dosage: UNK, 2/D
  13. AMBIEN [Concomitant]
     Dosage: 10 MG, EACH EVENING
  14. LIPITOR [Concomitant]
     Dosage: 80 MG, EACH EVENING
  15. FUROSEMIDE W/POTASSIUM CHLORIDE [Concomitant]
     Indication: CARDIAC FAILURE CONGESTIVE
     Dosage: 20 MG, 2/D
  16. FUROSEMIDE W/POTASSIUM CHLORIDE [Concomitant]
     Dosage: 20 MG, 3/D
  17. CENTRUM SILVER [Concomitant]
     Dosage: UNK, DAILY (1/D)
  18. HYDROCODONE [Concomitant]
     Dosage: 1 D/F, EVERY 4 HRS

REACTIONS (16)
  - ARTHRITIS [None]
  - BACK PAIN [None]
  - BLOOD GLUCOSE INCREASED [None]
  - CARDIAC FAILURE CONGESTIVE [None]
  - CELLULITIS [None]
  - DYSPNOEA [None]
  - ERYTHEMA [None]
  - GAIT DISTURBANCE [None]
  - ILL-DEFINED DISORDER [None]
  - KIDNEY INFECTION [None]
  - MALAISE [None]
  - OEDEMA PERIPHERAL [None]
  - PAIN IN EXTREMITY [None]
  - RENAL PAIN [None]
  - SKIN WARM [None]
  - WEIGHT INCREASED [None]
